FAERS Safety Report 9426269 (Version 1)
Quarter: 2013Q3

REPORT INFORMATION
  Report Type: Spontaneous
  Country: GB (occurrence: GB)
  Receive Date: 20130730
  Receipt Date: 20130730
  Transmission Date: 20140515
  Serious: Yes (Death, Life-Threatening, Hospitalization)
  Sender: FDA-Public Use
  Company Number: GB-ROCHE-1237743

PATIENT
  Age: 72 Year
  Sex: Male
  Weight: 69.3 kg

DRUGS (10)
  1. XELODA [Suspect]
     Indication: PRODUCT USED FOR UNKNOWN INDICATION
     Route: 065
     Dates: start: 20130529
  2. XELODA [Suspect]
     Dosage: 1300 MG AT AM AND 1000 MG AT EVEINING.
     Route: 065
     Dates: start: 20130603, end: 20130609
  3. ISPAGHULA HUSK [Concomitant]
     Indication: CONSTIPATION
     Dosage: STARTED PRE ADMISSION AND STOPPED ON ADMISSION.
     Route: 048
  4. PEPPERMINT [Concomitant]
     Indication: FLATULENCE
     Dosage: STARTED PRE ADMISSION AND STOPPED ON ADMISSION.
     Route: 048
  5. RECTOGESIC OINTMENT (NITROGLYCERIN) [Concomitant]
     Dosage: STARTED PRE ADMISSION AND STOPPED ON ADMISSION.
     Route: 065
  6. TAMSULOSIN [Concomitant]
     Dosage: STARTED PRE ADMISSION AND STOPPED ON ADMISSION.
     Route: 048
  7. OMEPRAZOL [Concomitant]
     Indication: MUCOSAL INFLAMMATION
     Dosage: STARTED PRE ADMISSION AND STOPPED ON ADMISSION.
     Route: 048
  8. SIMVASTATIN [Concomitant]
     Route: 048
  9. VITAMIN D3 [Concomitant]
     Route: 048
  10. COD LIVER OIL [Concomitant]
     Route: 065

REACTIONS (6)
  - Thrombocytopenia [Fatal]
  - Neutropenia [Fatal]
  - Mucosal inflammation [Fatal]
  - Diarrhoea [Fatal]
  - Stomatitis [Fatal]
  - Toxicity to various agents [Unknown]
